FAERS Safety Report 7988029-8 (Version None)
Quarter: 2011Q4

REPORT INFORMATION
  Report Type: 
  Country: None (occurrence: None)
  Receive Date: 20111216
  Receipt Date: 20110304
  Transmission Date: 20120403
  Serious: No
  Sender: FDA-Public Use
  Company Number: US-BRISTOL-MYERS SQUIBB COMPANY-15416480

PATIENT
  Age: 11 Year
  Sex: Male
  Weight: 75 kg

DRUGS (5)
  1. METHYLPHENIDATE [Concomitant]
  2. ABILIFY [Suspect]
     Indication: IMPULSE-CONTROL DISORDER
     Dosage: 2MG FOR A DAY FOR 9MONTHS
     Dates: end: 20101001
  3. MULTI-VITAMIN [Concomitant]
  4. CONCERTA [Concomitant]
     Dosage: IN THE MORNING
  5. MELATONIN [Concomitant]
     Indication: INSOMNIA

REACTIONS (1)
  - WEIGHT INCREASED [None]
